FAERS Safety Report 11010464 (Version 5)
Quarter: 2015Q2

REPORT INFORMATION
  Report Type: Spontaneous
  Country: US (occurrence: US)
  Receive Date: 20150410
  Receipt Date: 20150520
  Transmission Date: 20150821
  Serious: Yes (Other)
  Sender: FDA-Public Use
  Company Number: US-GLAXOSMITHKLINE-US2015047036

PATIENT
  Age: 69 Year
  Sex: Female

DRUGS (9)
  1. ADVAIR DISKUS [Suspect]
     Active Substance: FLUTICASONE PROPIONATE\SALMETEROL XINAFOATE
     Indication: CHRONIC OBSTRUCTIVE PULMONARY DISEASE
     Dosage: 1 PUFF(S), BID
     Route: 055
     Dates: start: 201405, end: 20150327
  2. IPRATROPIUM [Concomitant]
     Active Substance: IPRATROPIUM
  3. PRAVASTATIN [Concomitant]
     Active Substance: PRAVASTATIN\PRAVASTATIN SODIUM
  4. PRESERVISION [Concomitant]
     Active Substance: MINERALS\VITAMINS
  5. DILTIAZEM [Concomitant]
     Active Substance: DILTIAZEM
  6. IBUPROFEN. [Concomitant]
     Active Substance: IBUPROFEN
  7. NYSTATIN. [Concomitant]
     Active Substance: NYSTATIN
  8. LEVOTHYROXINE [Concomitant]
     Active Substance: LEVOTHYROXINE
  9. METOPROLOL [Concomitant]
     Active Substance: METOPROLOL

REACTIONS (3)
  - Incorrect product storage [Unknown]
  - Oral fungal infection [Recovering/Resolving]
  - Pulmonary mycosis [Unknown]

NARRATIVE: CASE EVENT DATE: 201501
